FAERS Safety Report 21088480 (Version 8)
Quarter: 2023Q2

REPORT INFORMATION
  Report Type: Report from Study
  Country: US (occurrence: US)
  Receive Date: 20220715
  Receipt Date: 20230627
  Transmission Date: 20230722
  Serious: Yes (Other)
  Sender: FDA-Public Use
  Company Number: US-TAKEDA-2022TUS024423

PATIENT
  Sex: Male

DRUGS (4)
  1. MARIBAVIR [Suspect]
     Active Substance: MARIBAVIR
     Indication: Cytomegalovirus colitis
     Dosage: 400 MILLIGRAM, BID
     Route: 048
     Dates: start: 20220405
  2. MARIBAVIR [Suspect]
     Active Substance: MARIBAVIR
     Indication: Complications of transplant surgery
     Dosage: 400 MILLIGRAM, BID
     Route: 048
     Dates: start: 20220405
  3. MARIBAVIR [Suspect]
     Active Substance: MARIBAVIR
     Indication: Colitis
  4. HUMAN IMMUNOGLOBULIN G [Suspect]
     Active Substance: HUMAN IMMUNOGLOBULIN G
     Indication: Product used for unknown indication
     Dosage: UNK
     Route: 042

REACTIONS (19)
  - Cytomegalovirus infection [Unknown]
  - Sepsis [Unknown]
  - Salmonellosis [Unknown]
  - Neuropathy peripheral [Unknown]
  - Retinal detachment [Unknown]
  - Arthritis [Unknown]
  - Myalgia [Unknown]
  - Pain [Unknown]
  - Decreased immune responsiveness [Recovering/Resolving]
  - Feeling abnormal [Unknown]
  - Condition aggravated [Unknown]
  - Therapeutic product effect delayed [Unknown]
  - White blood cell count decreased [Unknown]
  - Drug ineffective [Unknown]
  - Diarrhoea [Recovering/Resolving]
  - Incorrect dose administered [Unknown]
  - Product availability issue [Unknown]
  - Insurance issue [Unknown]
  - Product use issue [Unknown]
